FAERS Safety Report 14584389 (Version 1)
Quarter: 2018Q1

REPORT INFORMATION
  Report Type: Spontaneous
  Country: IT (occurrence: IT)
  Receive Date: 20180301
  Receipt Date: 20180301
  Transmission Date: 20180509
  Serious: Yes (Other)
  Sender: FDA-Public Use
  Company Number: IT-ROCHE-2081253

PATIENT
  Age: 47 Year
  Sex: Female

DRUGS (3)
  1. RIVOTRIL [Suspect]
     Active Substance: CLONAZEPAM
     Indication: ANXIETY
     Dosage: DATE OF LAST DOSE ON 06/FEB/2018
     Route: 048
     Dates: start: 20180206
  2. TRITTICO [Concomitant]
     Active Substance: TRAZODONE HYDROCHLORIDE
     Indication: ANXIETY
     Dosage: TRITTICO 75 MG COMPRESSE A RILASCIO PROLUNGATO
     Route: 065
     Dates: start: 20180206, end: 20180206
  3. PROZIN (ITALY) [Suspect]
     Active Substance: CHLORPROMAZINE HYDROCHLORIDE
     Indication: PSYCHOTIC DISORDER
     Dosage: 25 MG COMPRESSE RIVESTITE?DATE OF LAST DOSE ON 06/FEB/2018
     Route: 048
     Dates: start: 20180206

REACTIONS (3)
  - Sopor [Unknown]
  - Intentional self-injury [Unknown]
  - Overdose [Unknown]

NARRATIVE: CASE EVENT DATE: 20180206
